FAERS Safety Report 24247497 (Version 2)
Quarter: 2024Q4

REPORT INFORMATION
  Report Type: Spontaneous
  Country: CA (occurrence: CA)
  Receive Date: 20240826
  Receipt Date: 20241106
  Transmission Date: 20250115
  Serious: Yes (Other)
  Sender: ORGANON
  Company Number: CA-ORGANON-O2408CAN001779

PATIENT
  Age: 45 Year
  Sex: Female

DRUGS (15)
  1. EZETIMIBE [Suspect]
     Active Substance: EZETIMIBE
     Indication: Type IIa hyperlipidaemia
     Dosage: 1 EVERY 1 DAYS
     Route: 065
  2. EZETIMIBE [Suspect]
     Active Substance: EZETIMIBE
     Dosage: UNK
     Route: 065
  3. ATORVASTATIN [Suspect]
     Active Substance: ATORVASTATIN
     Indication: Type IIa hyperlipidaemia
     Dosage: 1 EVERY 1 DAYS
     Route: 065
  4. ATORVASTATIN [Suspect]
     Active Substance: ATORVASTATIN
     Dosage: UNK
     Route: 065
  5. EVINACUMAB [Suspect]
     Active Substance: EVINACUMAB
     Indication: Type IIa hyperlipidaemia
     Dosage: UNK
     Route: 058
  6. EVINACUMAB [Suspect]
     Active Substance: EVINACUMAB
     Dosage: UNK
     Route: 058
  7. EVINACUMAB [Suspect]
     Active Substance: EVINACUMAB
     Indication: Type IIa hyperlipidaemia
     Dosage: 15.0 MG/KG
     Route: 042
  8. EVINACUMAB [Suspect]
     Active Substance: EVINACUMAB
     Dosage: UNK
     Route: 042
  9. LOMITAPIDE [Suspect]
     Active Substance: LOMITAPIDE
     Indication: Type IIa hyperlipidaemia
     Dosage: UNK
     Route: 065
  10. LOMITAPIDE [Suspect]
     Active Substance: LOMITAPIDE
     Dosage: UNK
     Route: 065
  11. LOMITAPIDE [Suspect]
     Active Substance: LOMITAPIDE
     Dosage: UNK
     Route: 065
  12. LOMITAPIDE [Suspect]
     Active Substance: LOMITAPIDE
     Dosage: UNK
     Route: 065
  13. LOMITAPIDE [Suspect]
     Active Substance: LOMITAPIDE
     Dosage: 5 MILLIGRAM
     Route: 065
  14. LOMITAPIDE [Suspect]
     Active Substance: LOMITAPIDE
     Dosage: 20 MILLIGRAM
     Route: 065
  15. ROSUVASTATIN [Suspect]
     Active Substance: ROSUVASTATIN
     Dosage: 1 DOSAGE FORM, QD (1 EVERY 1 DAYS)
     Route: 065

REACTIONS (4)
  - Hepatic steatosis [Recovering/Resolving]
  - Diarrhoea [Recovering/Resolving]
  - International normalised ratio increased [Recovering/Resolving]
  - Nausea [Recovering/Resolving]
